FAERS Safety Report 23091580 (Version 1)
Quarter: 2023Q4

REPORT INFORMATION
  Report Type: Spontaneous
  Country: US (occurrence: US)
  Receive Date: 20231020
  Receipt Date: 20231020
  Transmission Date: 20240109
  Serious: Yes (Death, Other)
  Sender: FDA-Public Use
  Company Number: US-MALLINCKRODT-MNK202305096

PATIENT
  Age: 46 Year
  Sex: Male

DRUGS (2)
  1. NITRIC OXIDE [Suspect]
     Active Substance: NITRIC OXIDE
     Indication: Cardio-respiratory arrest
     Dosage: UNKNOWN
     Route: 055
  2. NITRIC OXIDE [Suspect]
     Active Substance: NITRIC OXIDE
     Indication: Respiratory failure
     Dosage: UNK (WEANED OFF)
     Route: 055

REACTIONS (7)
  - Pseudomonas infection [Fatal]
  - Toxic shock syndrome streptococcal [Not Recovered/Not Resolved]
  - Purpura fulminans [Unknown]
  - Ventricular dysfunction [Unknown]
  - Coagulopathy [Unknown]
  - Product use in unapproved indication [Unknown]
  - Product use issue [Unknown]
